FAERS Safety Report 24330474 (Version 1)
Quarter: 2024Q3

REPORT INFORMATION
  Report Type: Spontaneous
  Country: SE (occurrence: SE)
  Receive Date: 20240918
  Receipt Date: 20240918
  Transmission Date: 20241017
  Serious: Yes (Hospitalization)
  Sender: ACCORD
  Company Number: None

PATIENT
  Age: 70 Year
  Sex: Female
  Weight: 60 kg

DRUGS (11)
  1. ROSUVASTATIN CALCIUM [Suspect]
     Active Substance: ROSUVASTATIN CALCIUM
     Indication: Blood cholesterol increased
     Dosage: 1X1
     Dates: start: 20210724, end: 20240820
  2. FELODIPINE [Concomitant]
     Active Substance: FELODIPINE
     Dosage: 1X1
     Dates: start: 2010
  3. BUPROPION HYDROCHLORIDE [Concomitant]
     Active Substance: BUPROPION HYDROCHLORIDE
     Dosage: 1X1
     Dates: start: 2018
  4. CANDESARTAN [Concomitant]
     Active Substance: CANDESARTAN
     Dosage: 1X1
     Dates: start: 2010
  5. CALCIUM CARBONATE\CHOLECALCIFEROL [Concomitant]
     Active Substance: CALCIUM CARBONATE\CHOLECALCIFEROL
     Dosage: 1X2
     Dates: start: 2010
  6. SOMATROPIN [Concomitant]
     Active Substance: SOMATROPIN
     Dosage: 0,3ML T N
     Dates: start: 2002
  7. IMMUNOGLOBULIN [Concomitant]
     Dosage: 30ML 1 TIME PER WEEK
     Dates: start: 2003
  8. LEVOTHYROXINE SODIUM [Concomitant]
     Active Substance: LEVOTHYROXINE SODIUM
     Dosage: 1X1
     Dates: start: 2002
  9. ESOMEPRAZOLE [Concomitant]
     Active Substance: ESOMEPRAZOLE
     Dosage: 1X1
     Dates: start: 2014
  10. PRASTERONE SULFATE [Concomitant]
     Active Substance: PRASTERONE SULFATE
     Dosage: 1X1
     Dates: start: 2002
  11. HYDROCORTISONE [Concomitant]
     Active Substance: HYDROCORTISONE\HYDROCORTISONE ACETATE
     Dosage: 2X1
     Dates: start: 2002

REACTIONS (1)
  - Tendon rupture [Recovering/Resolving]

NARRATIVE: CASE EVENT DATE: 20240101
